FAERS Safety Report 11024832 (Version 1)
Quarter: 2015Q2

REPORT INFORMATION
  Report Type: Spontaneous
  Country: PT (occurrence: PT)
  Receive Date: 20150414
  Receipt Date: 20150414
  Transmission Date: 20150821
  Serious: Yes (Other)
  Sender: FDA-Public Use
  Company Number: PT-ROCHE-1562347

PATIENT
  Age: 41 Year
  Sex: Female

DRUGS (2)
  1. DORNASE ALFA [Suspect]
     Active Substance: DORNASE ALFA
     Indication: PLEURAL INFECTION
     Dosage: 5 MG TWICE A DAY, FOR 3 CONSECUTIVE DAYS
     Route: 034
  2. ALTEPLASE [Suspect]
     Active Substance: ALTEPLASE
     Indication: PLEURAL INFECTION
     Dosage: 10 MG TWICE A DAY, FOR 3 CONSECUTIVE DAYS
     Route: 034

REACTIONS (2)
  - Injection site pain [Recovered/Resolved]
  - Off label use [Unknown]
